FAERS Safety Report 22399178 (Version 2)
Quarter: 2023Q2

REPORT INFORMATION
  Report Type: Spontaneous
  Country: US (occurrence: US)
  Receive Date: 20230602
  Receipt Date: 20230614
  Transmission Date: 20230722
  Serious: No
  Sender: FDA-Public Use
  Company Number: US-002147023-NVSC2023US113198

PATIENT
  Age: 49 Year
  Sex: Female

DRUGS (20)
  1. TRANSDERM SCOP [Suspect]
     Active Substance: SCOPOLAMINE
     Indication: Psoriasis
     Dosage: AT AN UNSPECIFIED DOSE AND FREQUENCY, DOSAGE FORM: TRANSDERMAL PATCH
     Route: 065
  2. TRANSDERM SCOP [Suspect]
     Active Substance: SCOPOLAMINE
     Indication: Psoriatic arthropathy
     Dosage: AT AN UNSPECIFIED DOSE AND FREQUENCY, DOSAGE FORM: TRANSDERMAL PATCH
     Route: 065
  3. LIDOCAINE [Suspect]
     Active Substance: LIDOCAINE
     Indication: Psoriasis
     Dosage: UNK
     Route: 065
  4. LIDOCAINE [Suspect]
     Active Substance: LIDOCAINE
     Indication: Psoriatic arthropathy
     Dosage: UNK
     Route: 065
  5. ACETAMINOPHEN [Suspect]
     Active Substance: ACETAMINOPHEN
     Indication: Psoriatic arthropathy
     Dosage: NAME OF HOLDER/APPLICANT: GSK
     Route: 065
  6. ACETAMINOPHEN [Suspect]
     Active Substance: ACETAMINOPHEN
     Indication: Psoriasis
     Dosage: NAME OF HOLDER/APPLICANT: GSK
     Route: 065
  7. ACETAMINOPHEN [Suspect]
     Active Substance: ACETAMINOPHEN
     Indication: Back pain
     Dosage: DRUG AUTHORIZATION HOLDER: GSK
     Route: 065
  8. IBUPROFEN [Suspect]
     Active Substance: IBUPROFEN
     Indication: Psoriatic arthropathy
     Dosage: UNK
     Route: 065
  9. IBUPROFEN [Suspect]
     Active Substance: IBUPROFEN
     Indication: Psoriasis
     Dosage: UNK
     Route: 065
  10. IBUPROFEN [Suspect]
     Active Substance: IBUPROFEN
     Indication: Back pain
     Dosage: DRUG AUTHORIZATION HOLDER: GSK
     Route: 065
  11. DICLOFENAC [Suspect]
     Active Substance: DICLOFENAC
     Indication: Psoriasis
     Dosage: DRUG AUTHORIZATION HOLDER: GSK
     Route: 065
  12. DICLOFENAC [Suspect]
     Active Substance: DICLOFENAC
     Indication: Psoriatic arthropathy
     Dosage: DRUG AUTHORIZATION HOLDER: GSK
     Route: 065
  13. COSENTYX [Suspect]
     Active Substance: SECUKINUMAB
     Indication: Psoriasis
     Dosage: 300 MG AT UNSPECIFIED FREQUENCY
     Route: 058
     Dates: start: 20230510
  14. COSENTYX [Suspect]
     Active Substance: SECUKINUMAB
     Indication: Psoriatic arthropathy
     Dosage: 150 MG AT UNSPECIFIED FREQUENCY
     Route: 058
     Dates: start: 20200622
  15. MELOXICAM [Suspect]
     Active Substance: MELOXICAM
     Indication: Psoriasis
     Dosage: UNK
     Route: 065
  16. MELOXICAM [Suspect]
     Active Substance: MELOXICAM
     Indication: Psoriatic arthropathy
     Dosage: UNK
     Route: 065
  17. ALCOHOL [Suspect]
     Active Substance: ALCOHOL
     Indication: Psoriasis
     Dosage: UNK
     Route: 065
  18. ALCOHOL [Suspect]
     Active Substance: ALCOHOL
     Indication: Psoriatic arthropathy
     Dosage: UNK
     Route: 065
  19. IODINE [Suspect]
     Active Substance: IODINE
     Indication: Psoriasis
     Dosage: UNK
     Route: 065
  20. IODINE [Suspect]
     Active Substance: IODINE
     Indication: Psoriatic arthropathy
     Dosage: UNK
     Route: 065

REACTIONS (8)
  - Arthralgia [Unknown]
  - Musculoskeletal stiffness [Unknown]
  - Joint swelling [Unknown]
  - Deformity [Unknown]
  - Skin plaque [Unknown]
  - Tenderness [Unknown]
  - Greater trochanteric pain syndrome [Unknown]
  - Drug ineffective [Unknown]
